FAERS Safety Report 13917425 (Version 3)
Quarter: 2018Q1

REPORT INFORMATION
  Report Type: Spontaneous
  Country: JP (occurrence: JP)
  Receive Date: 20170829
  Receipt Date: 20180117
  Transmission Date: 20180508
  Serious: Yes (Death, Life-Threatening)
  Sender: FDA-Public Use
  Company Number: JP-PURDUE-GBR-2017-0048184

PATIENT
  Sex: Male

DRUGS (2)
  1. OXYCONTIN [Suspect]
     Active Substance: OXYCODONE HYDROCHLORIDE
     Indication: GASTROINTESTINAL CARCINOMA
     Route: 048
  2. OXIFAST [Suspect]
     Active Substance: OXYCODONE
     Indication: GASTROINTESTINAL CARCINOMA
     Route: 065

REACTIONS (3)
  - Constipation [Recovered/Resolved]
  - Haematemesis [Recovered/Resolved]
  - Gastrointestinal carcinoma [Fatal]

NARRATIVE: CASE EVENT DATE: 201707
